FAERS Safety Report 8449099-6 (Version None)
Quarter: 2012Q2

REPORT INFORMATION
  Report Type: 
  Country: None (occurrence: None)
  Receive Date: 20120619
  Receipt Date: 20120606
  Transmission Date: 20120825
  Serious: Yes (Hospitalization)
  Sender: FDA-Public Use
  Company Number: US-ACTELION-A-NJ2012-63426

PATIENT

DRUGS (4)
  1. SILDENAFIL [Concomitant]
  2. CARDIZEM [Concomitant]
  3. PREDNISONE [Concomitant]
  4. EPOPROSTENOL SODIUM [Suspect]
     Indication: PULMONARY ARTERIAL HYPERTENSION
     Dosage: 12 NG/KG, PER MIN
     Route: 041
     Dates: start: 20120209, end: 20120607

REACTIONS (9)
  - LUNG TRANSPLANT [None]
  - NAUSEA [None]
  - PLATELET COUNT ABNORMAL [None]
  - DYSPNOEA [None]
  - PNEUMONIA [None]
  - DEPRESSED MOOD [None]
  - TEARFULNESS [None]
  - RESPIRATORY FAILURE [None]
  - HEART RATE INCREASED [None]
